FAERS Safety Report 17993493 (Version 1)
Quarter: 2020Q3

REPORT INFORMATION
  Report Type: Spontaneous
  Country: US (occurrence: US)
  Receive Date: 20200707
  Receipt Date: 20200707
  Transmission Date: 20201103
  Serious: Yes (Hospitalization)
  Sender: FDA-Public Use
  Company Number: None

PATIENT
  Age: 69 Year
  Sex: Female
  Weight: 64.36 kg

DRUGS (7)
  1. VITAMIN B12 [Concomitant]
     Active Substance: CYANOCOBALAMIN
  2. ROPINIROLE. [Concomitant]
     Active Substance: ROPINIROLE
  3. FOLIC ACID. [Concomitant]
     Active Substance: FOLIC ACID
  4. METOPROLOL. [Concomitant]
     Active Substance: METOPROLOL
  5. OMEPRAZOLE. [Concomitant]
     Active Substance: OMEPRAZOLE
  6. PROBIOTIC QD [Concomitant]
  7. ADALIMUMAB [Suspect]
     Active Substance: ADALIMUMAB

REACTIONS (3)
  - Treatment failure [None]
  - Drug level below therapeutic [None]
  - Disease progression [None]

NARRATIVE: CASE EVENT DATE: 20191223
